FAERS Safety Report 9642061 (Version 1)
Quarter: 2013Q4

REPORT INFORMATION
  Report Type: Spontaneous
  Country: DE (occurrence: DE)
  Receive Date: 20131023
  Receipt Date: 20131023
  Transmission Date: 20140711
  Serious: Yes (Other)
  Sender: FDA-Public Use
  Company Number: PHHY2013DE116477

PATIENT
  Age: 38 Year
  Sex: Female

DRUGS (3)
  1. OLMESARTAN [Suspect]
     Indication: CEREBROVASCULAR ACCIDENT
     Dosage: 5 MG, UNK
  2. METHYLDOPA [Suspect]
  3. FUROSEMIDE [Suspect]

REACTIONS (4)
  - Premature rupture of membranes [Recovered/Resolved]
  - Oligohydramnios [Recovered/Resolved]
  - Premature delivery [Unknown]
  - Maternal exposure during pregnancy [Unknown]
